FAERS Safety Report 7765403-6 (Version None)
Quarter: 2011Q3

REPORT INFORMATION
  Report Type: 
  Country: None (occurrence: None)
  Receive Date: 20110916
  Receipt Date: 20110912
  Transmission Date: 20111222
  Serious: Yes (Hospitalization)
  Sender: FDA-Public Use
  Company Number: DKLU1073011

PATIENT
  Age: 10 Year
  Sex: Male

DRUGS (9)
  1. ELSPAR [Suspect]
     Indication: B PRECURSOR TYPE ACUTE LEUKAEMIA
     Dosage: 140000 IU INTERNATIONAL UNIT(S), INTRAMUSCULAR
     Route: 030
     Dates: start: 20110526
  2. DEXAMETHASONE [Suspect]
     Indication: B PRECURSOR TYPE ACUTE LEUKAEMIA
     Dosage: INTRAVENOUS
     Route: 042
     Dates: start: 20110526
  3. FILGRASTIM (FILGRASTIM) [Concomitant]
  4. CYCLOPHOSPHAMIDE [Suspect]
     Indication: B PRECURSOR TYPE ACUTE LEUKAEMIA
     Dosage: INTRAVENOUS
     Route: 042
     Dates: start: 20110526
  5. HYDROCORTONE [Suspect]
     Indication: B PRECURSOR TYPE ACUTE LEUKAEMIA
     Dates: start: 20110526
  6. CYTARABINE [Suspect]
     Indication: B PRECURSOR TYPE ACUTE LEUKAEMIA
     Dosage: INTRAVENOUS
     Route: 042
     Dates: start: 20110526
  7. DAUNORUBICIN HCL [Suspect]
     Indication: B PRECURSOR TYPE ACUTE LEUKAEMIA
     Dosage: INTRAVENOUS
     Route: 042
     Dates: start: 20110526
  8. VINCRISTINE SULFATE [Suspect]
     Indication: B PRECURSOR TYPE ACUTE LEUKAEMIA
     Dosage: INTRAVENOUS
     Route: 042
     Dates: start: 20110526
  9. METHOTREXATE [Suspect]
     Indication: B PRECURSOR TYPE ACUTE LEUKAEMIA
     Dosage: ORAL
     Route: 048
     Dates: start: 20110526

REACTIONS (3)
  - PRESYNCOPE [None]
  - COLITIS [None]
  - HYPOTENSION [None]
